FAERS Safety Report 7073501-8 (Version None)
Quarter: 2010Q4

REPORT INFORMATION
  Report Type: 
  Country: None (occurrence: None)
  Receive Date: 20101029
  Receipt Date: 20100629
  Transmission Date: 20110411
  Serious: No
  Sender: FDA-Public Use
  Company Number: A0867668A

PATIENT
  Age: 43 Year
  Sex: Male

DRUGS (5)
  1. ADVAIR DISKUS 100/50 [Suspect]
     Dosage: 1PUFF TWICE PER DAY
     Route: 055
     Dates: start: 20080101
  2. METFORMIN [Concomitant]
  3. LANTUS [Concomitant]
  4. HUMALOG [Concomitant]
  5. AMARYL [Concomitant]

REACTIONS (2)
  - CHEILITIS [None]
  - RASH [None]
